FAERS Safety Report 7934690-3 (Version None)
Quarter: 2011Q4

REPORT INFORMATION
  Report Type: 
  Country: None (occurrence: None)
  Receive Date: 20111122
  Receipt Date: 20111114
  Transmission Date: 20120403
  Serious: Yes (Hospitalization, Other)
  Sender: FDA-Public Use
  Company Number: US-MERCK-1102USA02276

PATIENT
  Age: 67 Year
  Sex: Female
  Weight: 110 kg

DRUGS (3)
  1. FOSAMAX [Suspect]
     Indication: OSTEOPOROSIS PROPHYLAXIS
     Route: 048
     Dates: start: 19990101, end: 20090101
  2. FOSAMAX [Suspect]
     Indication: OSTEOPENIA
     Route: 048
     Dates: start: 19990101, end: 20090101
  3. PREVACID [Concomitant]
     Indication: GASTROOESOPHAGEAL REFLUX DISEASE
     Route: 065
     Dates: start: 19990101, end: 20040101

REACTIONS (38)
  - OSTEOARTHRITIS [None]
  - CATARACT [None]
  - ROTATOR CUFF SYNDROME [None]
  - RASH [None]
  - LYMPHOEDEMA [None]
  - ECZEMA [None]
  - HYPOTHYROIDISM [None]
  - GASTROOESOPHAGEAL REFLUX DISEASE [None]
  - TYPE 2 DIABETES MELLITUS [None]
  - COLITIS [None]
  - DERMATITIS CONTACT [None]
  - ANKLE FRACTURE [None]
  - ROAD TRAFFIC ACCIDENT [None]
  - SYNOVITIS [None]
  - RHINITIS ALLERGIC [None]
  - MAMMOGRAM ABNORMAL [None]
  - ARTERIOSCLEROSIS CORONARY ARTERY [None]
  - OEDEMA PERIPHERAL [None]
  - CELLULITIS [None]
  - CHRONIC OBSTRUCTIVE PULMONARY DISEASE [None]
  - FATIGUE [None]
  - FEMUR FRACTURE [None]
  - CARDIAC MURMUR [None]
  - HYPERSENSITIVITY [None]
  - VENOUS THROMBOSIS LIMB [None]
  - MYOCARDIAL INFARCTION [None]
  - ANXIETY [None]
  - BURSITIS [None]
  - HYPERTENSION [None]
  - MUSCULOSKELETAL PAIN [None]
  - ABSCESS LIMB [None]
  - LUMBAR SPINAL STENOSIS [None]
  - LUMBAR RADICULOPATHY [None]
  - HAEMATOMA [None]
  - INTERVERTEBRAL DISC DEGENERATION [None]
  - CARPAL TUNNEL SYNDROME [None]
  - HYPERLIPIDAEMIA [None]
  - MITRAL VALVE PROLAPSE [None]
